FAERS Safety Report 9532130 (Version 1)
Quarter: 2013Q3

REPORT INFORMATION
  Report Type: Spontaneous
  Country: PE (occurrence: PE)
  Receive Date: 20130918
  Receipt Date: 20130918
  Transmission Date: 20140515
  Serious: Yes (Death)
  Sender: FDA-Public Use
  Company Number: PE-B.I. PHARMACEUTICALS,INC./RIDGEFIELD-2013-RA-00286RA

PATIENT
  Age: 56 Year
  Sex: Female

DRUGS (3)
  1. SPIRIVA [Suspect]
     Indication: PULMONARY FIBROSIS
     Dosage: 18 MCG
     Route: 048
     Dates: start: 20130901, end: 20130909
  2. MEDROL [Concomitant]
     Indication: NEOPLASM MALIGNANT
     Route: 048
  3. DEXAMETAZONE [Concomitant]
     Dosage: 3 TABLETS A DAY
     Route: 048

REACTIONS (1)
  - Sepsis [Fatal]
